FAERS Safety Report 22604364 (Version 8)
Quarter: 2024Q1

REPORT INFORMATION
  Report Type: Spontaneous
  Country: US (occurrence: US)
  Receive Date: 20230615
  Receipt Date: 20240329
  Transmission Date: 20240410
  Serious: Yes (Hospitalization, Other)
  Sender: FDA-Public Use
  Company Number: US-UNITED THERAPEUTICS-UNT-2023-013500

PATIENT
  Sex: Male

DRUGS (17)
  1. REMODULIN [Suspect]
     Active Substance: TREPROSTINIL
     Indication: Pulmonary arterial hypertension
     Dosage: 0.041 ?G/KG, CONTINUING
     Route: 058
     Dates: start: 2023
  2. REMODULIN [Suspect]
     Active Substance: TREPROSTINIL
     Dosage: 0.0361 ?G/KG (DECREASED DOSE), CONTINUING
     Route: 058
     Dates: start: 20230825
  3. REMODULIN [Suspect]
     Active Substance: TREPROSTINIL
     Dosage: 0.0155 ?G/KG, CONTINUING
     Route: 058
     Dates: start: 2023
  4. REMODULIN [Suspect]
     Active Substance: TREPROSTINIL
     Dosage: UNK, CONTINUING
     Route: 058
     Dates: start: 20230505
  5. VALGANCICLOVIR [Suspect]
     Active Substance: VALGANCICLOVIR
     Indication: Cytomegalovirus viraemia
     Dosage: UNK
     Route: 065
  6. SILDENAFIL [Concomitant]
     Active Substance: SILDENAFIL
     Indication: Product used for unknown indication
     Dosage: UNK
     Route: 065
  7. NIVESTYM [Concomitant]
     Active Substance: FILGRASTIM-AAFI
     Indication: Thrombocytopenia
     Dosage: UNK
     Route: 065
  8. NIVESTYM [Concomitant]
     Active Substance: FILGRASTIM-AAFI
     Indication: Wiskott-Aldrich syndrome
  9. NIVESTYM [Concomitant]
     Active Substance: FILGRASTIM-AAFI
     Indication: Bone marrow transplant
  10. PROMACTA [Concomitant]
     Active Substance: ELTROMBOPAG OLAMINE
     Indication: Thrombocytopenia
     Dosage: UNK
     Route: 048
  11. PROMACTA [Concomitant]
     Active Substance: ELTROMBOPAG OLAMINE
     Indication: Wiskott-Aldrich syndrome
  12. PROMACTA [Concomitant]
     Active Substance: ELTROMBOPAG OLAMINE
     Indication: Bone marrow transplant
  13. CYCLOSPORINE [Concomitant]
     Active Substance: CYCLOSPORINE
     Indication: Thrombocytopenia
     Dosage: UNK
     Route: 065
  14. CYCLOSPORINE [Concomitant]
     Active Substance: CYCLOSPORINE
     Indication: Wiskott-Aldrich syndrome
  15. CYCLOSPORINE [Concomitant]
     Active Substance: CYCLOSPORINE
     Indication: Bone marrow transplant
  16. SIROLIMUS [Concomitant]
     Active Substance: SIROLIMUS
     Indication: Product used for unknown indication
     Dosage: UNK
     Route: 048
  17. TRIAMCINOLONE ACETONIDE [Concomitant]
     Active Substance: TRIAMCINOLONE ACETONIDE
     Indication: Product used for unknown indication
     Dosage: UNK
     Route: 065

REACTIONS (15)
  - Cytomegalovirus viraemia [Not Recovered/Not Resolved]
  - Febrile neutropenia [Not Recovered/Not Resolved]
  - Vomiting [Not Recovered/Not Resolved]
  - Hypoxia [Unknown]
  - Nausea [Unknown]
  - Diarrhoea [Unknown]
  - Infusion site erythema [Recovering/Resolving]
  - Infusion site haemorrhage [Recovering/Resolving]
  - Infusion site swelling [Recovering/Resolving]
  - Infusion site induration [Recovering/Resolving]
  - Skin abrasion [Recovering/Resolving]
  - Scratch [Recovering/Resolving]
  - Feeling abnormal [Unknown]
  - Crying [Unknown]
  - Infusion site pain [Not Recovered/Not Resolved]

NARRATIVE: CASE EVENT DATE: 20230101
